FAERS Safety Report 4815544-8 (Version None)
Quarter: 2005Q4

REPORT INFORMATION
  Report Type: 
  Country: None (occurrence: None)
  Receive Date: 20051031
  Receipt Date: 20050623
  Transmission Date: 20060501
  Serious: Yes (Hospitalization, Disabling, Other)
  Sender: FDA-Public Use
  Company Number: 200511852JP

PATIENT
  Age: 29 Year
  Sex: Female
  Weight: 60 kg

DRUGS (5)
  1. HUMALOG [Suspect]
     Indication: DIABETES MELLITUS INSULIN-DEPENDENT
     Route: 058
     Dates: start: 20050420, end: 20050816
  2. HUMALOG [Suspect]
     Route: 058
     Dates: start: 20050817, end: 20050907
  3. LANTUS [Suspect]
     Indication: DIABETES MELLITUS INSULIN-DEPENDENT
     Route: 058
     Dates: start: 20040101, end: 20050816
  4. LANTUS [Suspect]
     Route: 058
     Dates: start: 20050817
  5. OPTIPEN (INSULIN PUMP) [Suspect]

REACTIONS (8)
  - BACTERIAL INFECTION [None]
  - CELLULITIS [None]
  - DRUG LEVEL INCREASED [None]
  - GAS GANGRENE [None]
  - HYPOGLYCAEMIA [None]
  - HYPOGLYCAEMIC COMA [None]
  - INJURY [None]
  - TOE AMPUTATION [None]
